FAERS Safety Report 7121803-9 (Version None)
Quarter: 2010Q4

REPORT INFORMATION
  Report Type: 
  Country: None (occurrence: None)
  Receive Date: 20101124
  Receipt Date: 20101115
  Transmission Date: 20110411
  Serious: Yes (Hospitalization)
  Sender: FDA-Public Use
  Company Number: US-ROCHE-735171

PATIENT
  Age: 52 Year
  Sex: Male
  Weight: 63.5 kg

DRUGS (22)
  1. BEVACIZUMAB [Suspect]
     Indication: GASTRIC CANCER
     Route: 040
  2. BEVACIZUMAB [Suspect]
     Dosage: DAY 1. LAST DOSE PRIOR TO SAE: 01 OCTOBER 2010
     Route: 042
     Dates: start: 20100507
  3. IRINOTECAN [Suspect]
     Indication: GASTRIC CANCER
     Dosage: LAST DOSE PRIOR TO SAE: 08 OCTOBER 2010. DOSE LEVEL: 50 MG/M2 OVER 30 MIN ON DAY 1 AND 8.
     Route: 042
     Dates: start: 20100507
  4. CISPLATIN [Suspect]
     Indication: GASTRIC CANCER
     Dosage: LAST DOSE PRIOR TO SAE: 08 OCTOBER 2010. FREQUENCY: OVER 30 MINUTE DAY 1, 8
     Route: 042
     Dates: start: 20100507
  5. DOCETAXEL [Suspect]
     Indication: GASTRIC CANCER
     Dosage: LAST DOSE PRIOR TO SAE: 08 OCTOBER 2010. FREQUENCY: OVER 30 MINUTE DAY 1, 8
     Route: 042
     Dates: start: 20100507
  6. AMBIEN [Concomitant]
     Dosage: EVERY NIGHT AT BEDTIME
     Route: 048
  7. ATIVAN [Concomitant]
     Dosage: EVERY 4 HOUR
     Route: 048
  8. CHOLECALCIFEROL [Concomitant]
     Dosage: DOSE: 1000 UNIT EVERY 24 HRS
     Route: 048
  9. COMPAZINE [Concomitant]
     Dosage: PROCHLORPERAZINE MALEATE:EVERY 6 HR
     Route: 048
  10. DECADRON [Concomitant]
     Dosage: EVERYDAY
     Route: 048
  11. EMLA [Concomitant]
     Dosage: LIDOCAINE 2.5% + PRILOCAINE 2.5% 1 APPLICATION TOPICAL X1
     Route: 061
  12. FOLIC ACID [Concomitant]
     Dosage: EVERYDAY
     Route: 048
  13. GLYBURIDE [Concomitant]
     Route: 048
  14. GUAIFENESIN [Concomitant]
     Indication: PRODUCTIVE COUGH
     Dosage: EVERY 4 HR AS REQUIRED
     Route: 048
  15. LIPITOR [Concomitant]
     Dosage: EVERYDAY
     Route: 048
  16. LOMOTIL [Concomitant]
     Dosage: 4 TIMES A DAY AS REQUIRED
     Route: 058
  17. LOVENOX [Concomitant]
     Dosage: TAKE 1 EVERYDAY
     Route: 058
  18. NICOTINE [Concomitant]
     Dosage: 21 MG/24 HR PATCH TD 24. TRANSDERMAL SYSTEM VARIABLE
     Route: 062
  19. OMEPRAZOLE [Concomitant]
     Route: 048
  20. OXYCODONE HCL [Concomitant]
     Indication: PAIN
     Dosage: TAKE 1 THEN EVERY 4 HR AS REQUIRED
     Route: 048
  21. PYRIDOXIN-HCL [Concomitant]
     Dosage: EVERYDAY.
     Route: 048
  22. ZOFRAN [Concomitant]
     Dosage: TAKE 1:  EVERY 8 HR AS REQUIRED
     Route: 048

REACTIONS (1)
  - GASTRIC CANCER [None]
